FAERS Safety Report 7634203-X (Version None)
Quarter: 2011Q3

REPORT INFORMATION
  Report Type: 
  Country: None (occurrence: None)
  Receive Date: 20110725
  Receipt Date: 20110504
  Transmission Date: 20111222
  Serious: No
  Sender: FDA-Public Use
  Company Number: US-B.I. PHARMACEUTICALS,INC./RIDGEFIELD-2011-BP-09056BP

PATIENT
  Sex: Male

DRUGS (7)
  1. BACTRIM [Suspect]
     Indication: URINARY TRACT INFECTION
     Dates: start: 20110301
  2. COREG [Concomitant]
     Indication: CARDIAC FAILURE
  3. PRADAXA [Suspect]
     Indication: ATRIAL FIBRILLATION
     Dosage: 300 MG
     Route: 048
     Dates: start: 20101102
  4. POTASSIUM [Concomitant]
     Indication: CARDIAC FAILURE
  5. DIGOXIN [Concomitant]
     Indication: ATRIAL FIBRILLATION
  6. AVODART [Concomitant]
  7. LASIX [Concomitant]
     Indication: CARDIAC FAILURE

REACTIONS (2)
  - INTERNATIONAL NORMALISED RATIO [None]
  - DYSPHAGIA [None]
